FAERS Safety Report 8271781-4 (Version None)
Quarter: 2012Q2

REPORT INFORMATION
  Report Type: 
  Country: None (occurrence: None)
  Receive Date: 20120410
  Receipt Date: 20120405
  Transmission Date: 20120825
  Serious: Yes (Disabling)
  Sender: FDA-Public Use
  Company Number: US-PFIZER INC-2012086719

PATIENT
  Sex: Female
  Weight: 72.6 kg

DRUGS (5)
  1. LYRICA [Suspect]
     Indication: FIBROMYALGIA
     Dosage: 50 MG, 2X/DAY
     Route: 048
     Dates: start: 20091007
  2. VALIUM [Concomitant]
     Indication: NEUROPATHY PERIPHERAL
  3. INDERAL [Concomitant]
     Indication: TREMOR
     Dosage: 40MG
  4. LYRICA [Suspect]
     Indication: PAIN
  5. VALIUM [Concomitant]
     Indication: PANIC ATTACK
     Dosage: 10 MG, TWO TO THREE TIMES A DAY AS NEEDED

REACTIONS (2)
  - ACCIDENT AT WORK [None]
  - INTERVERTEBRAL DISC PROTRUSION [None]
